FAERS Safety Report 11571208 (Version 2)
Quarter: 2016Q1

REPORT INFORMATION
  Report Type: Report from Study
  Country: US (occurrence: US)
  Receive Date: 20150929
  Receipt Date: 20160317
  Transmission Date: 20160525
  Serious: No
  Sender: FDA-Public Use
  Company Number: US-AMGEN-USASL2015099787

PATIENT
  Age: 54 Year
  Sex: Female

DRUGS (1)
  1. ENBREL [Suspect]
     Active Substance: ETANERCEPT
     Indication: RHEUMATOID ARTHRITIS
     Dosage: UNK
     Route: 065
     Dates: end: 201509

REACTIONS (5)
  - Cardiac disorder [Unknown]
  - Blood pressure abnormal [Unknown]
  - Injection site pain [Unknown]
  - Malaise [Unknown]
  - Arthritis [Not Recovered/Not Resolved]
